FAERS Safety Report 5124927-0 (Version None)
Quarter: 2006Q4

REPORT INFORMATION
  Report Type: 
  Country: None (occurrence: None)
  Receive Date: 20061006
  Receipt Date: 20060927
  Transmission Date: 20070319
  Serious: Yes (Other)
  Sender: FDA-Public Use
  Company Number: B0440384A

PATIENT
  Age: 78 Year
  Sex: Female

DRUGS (2)
  1. VALTREX [Suspect]
     Indication: HERPES ZOSTER
     Dosage: 500 MG/THREE TIMES PER DAY/ ORAL
     Route: 048
  2. WARFARIN SODIUM [Concomitant]

REACTIONS (1)
  - RETINAL HAEMORRHAGE [None]
